FAERS Safety Report 18162067 (Version 1)
Quarter: 2020Q3

REPORT INFORMATION
  Report Type: Report from Study
  Country: US (occurrence: US)
  Receive Date: 20200818
  Receipt Date: 20200818
  Transmission Date: 20201103
  Serious: Yes (Death)
  Sender: FDA-Public Use
  Company Number: US-EMD SERONO-9181195

PATIENT
  Age: 73 Year
  Sex: Female

DRUGS (1)
  1. REBIF [Suspect]
     Active Substance: INTERFERON BETA-1A
     Indication: MULTIPLE SCLEROSIS
     Route: 058
     Dates: start: 20150130

REACTIONS (1)
  - Death [Fatal]

NARRATIVE: CASE EVENT DATE: 20200815
